FAERS Safety Report 16175888 (Version 2)
Quarter: 2019Q2

REPORT INFORMATION
  Report Type: Spontaneous
  Country: US (occurrence: US)
  Receive Date: 20190409
  Receipt Date: 20190508
  Transmission Date: 20190711
  Serious: Yes (Other)
  Sender: FDA-Public Use
  Company Number: US-NOVOPROD-655976

PATIENT
  Age: 75 Year
  Sex: Female
  Weight: 97.5 kg

DRUGS (1)
  1. LEVEMIR [Suspect]
     Active Substance: INSULIN DETEMIR
     Indication: TYPE 2 DIABETES MELLITUS
     Dosage: VARIES 50-70 UNITS
     Route: 058
     Dates: start: 2013

REACTIONS (3)
  - Chronic kidney disease [Not Recovered/Not Resolved]
  - Macular degeneration [Not Recovered/Not Resolved]
  - Blood glucose increased [Not Recovered/Not Resolved]

NARRATIVE: CASE EVENT DATE: 2018
